FAERS Safety Report 6666504-6 (Version None)
Quarter: 2010Q2

REPORT INFORMATION
  Report Type: 
  Country: None (occurrence: None)
  Receive Date: 20100402
  Receipt Date: 20100326
  Transmission Date: 20101027
  Serious: Yes (Hospitalization)
  Sender: FDA-Public Use
  Company Number: US-ALLERGAN-1004005US

PATIENT
  Age: 19 Year
  Sex: Female

DRUGS (4)
  1. BOTOX [Suspect]
     Indication: TORTICOLLIS
     Dosage: UNK
     Route: 030
     Dates: start: 20100318, end: 20100318
  2. LIDODERM [Suspect]
     Dosage: UNK
     Route: 062
     Dates: start: 20100320
  3. ZONEGRAN [Concomitant]
     Indication: MIGRAINE
  4. CALCITRIOL [Concomitant]

REACTIONS (18)
  - ABDOMINAL DISTENSION [None]
  - ABDOMINAL PAIN [None]
  - BACK PAIN [None]
  - BLINDNESS TRANSIENT [None]
  - BLOOD PRESSURE DECREASED [None]
  - CHEST PAIN [None]
  - DEAFNESS [None]
  - EYELID PTOSIS [None]
  - FATIGUE [None]
  - FEELING COLD [None]
  - FLATULENCE [None]
  - HYPERHIDROSIS [None]
  - LIP DISCOLOURATION [None]
  - NAUSEA [None]
  - NECK PAIN [None]
  - RASH [None]
  - SYNCOPE [None]
  - VOMITING [None]
